FAERS Safety Report 17946053 (Version 1)
Quarter: 2020Q2

REPORT INFORMATION
  Report Type: Spontaneous
  Country: GB (occurrence: GB)
  Receive Date: 20200626
  Receipt Date: 20200626
  Transmission Date: 20200714
  Serious: Yes (Congenital Anomaly, Other)
  Sender: FDA-Public Use
  Company Number: GB-SUN PHARMACEUTICAL INDUSTRIES LTD-2020RR-251634

PATIENT

DRUGS (1)
  1. ISOTRETINOIN. [Suspect]
     Active Substance: ISOTRETINOIN
     Indication: ACNE
     Dosage: UNKNOWN ()
     Route: 064
     Dates: start: 20191222, end: 20200122

REACTIONS (2)
  - Cerebellar hypoplasia [Not Recovered/Not Resolved]
  - Foetal exposure during pregnancy [Unknown]
